FAERS Safety Report 21841439 (Version 6)
Quarter: 2023Q1

REPORT INFORMATION
  Report Type: Spontaneous
  Country: CA (occurrence: CA)
  Receive Date: 20230110
  Receipt Date: 20230329
  Transmission Date: 20230417
  Serious: Yes (Other)
  Sender: FDA-Public Use
  Company Number: CA-CELLTRION INC.-2022CA021764

PATIENT

DRUGS (5)
  1. INFLECTRA [Suspect]
     Active Substance: INFLIXIMAB-DYYB
     Indication: Crohn^s disease
     Dosage: 10 MG/KG (INDUCTION: 10 MG/KG, THEN 5 MG/KG EVERY 8 WEEKS (WEEK 0))
     Route: 042
     Dates: start: 20221214, end: 20221214
  2. INFLECTRA [Suspect]
     Active Substance: INFLIXIMAB-DYYB
     Dosage: 10 MG/KG (INDUCTION: 10 MG/KG, THEN 5 MG/KG EVERY 8 WEEKS)
     Route: 042
     Dates: start: 20221230
  3. INFLECTRA [Suspect]
     Active Substance: INFLIXIMAB-DYYB
     Dosage: 880 MG, WEEK 6 DOSE (INDUCTION: 10MG/KG, THEN 5MG/KG Q8 WEEKS)
     Route: 042
     Dates: start: 20230126
  4. INFLECTRA [Suspect]
     Active Substance: INFLIXIMAB-DYYB
     Dosage: 450MG (5MG/KG) Q 7 WEEKS AND 5 DAYS
     Route: 042
     Dates: start: 20230321
  5. PREDNISONE [Concomitant]
     Active Substance: PREDNISONE
     Dosage: 1 DF
     Route: 065

REACTIONS (11)
  - Muscle spasms [Recovered/Resolved]
  - Back pain [Recovered/Resolved]
  - Anal fissure [Not Recovered/Not Resolved]
  - Condition aggravated [Recovering/Resolving]
  - Viral infection [Unknown]
  - Pyrexia [Not Recovered/Not Resolved]
  - Arthralgia [Not Recovered/Not Resolved]
  - Malaise [Not Recovered/Not Resolved]
  - Blood pressure increased [Recovered/Resolved]
  - Off label use [Unknown]
  - Off label use [Unknown]

NARRATIVE: CASE EVENT DATE: 20221201
